FAERS Safety Report 6453297-0 (Version None)
Quarter: 2009Q4

REPORT INFORMATION
  Report Type: 
  Country: None (occurrence: None)
  Receive Date: 20091124
  Receipt Date: 20091115
  Transmission Date: 20100525
  Serious: Yes (Hospitalization, Other)
  Sender: FDA-Public Use
  Company Number: US-AMGEN-QUU374801

PATIENT
  Sex: Female

DRUGS (2)
  1. ENBREL [Suspect]
     Indication: RHEUMATOID ARTHRITIS
     Route: 058
     Dates: start: 20021101
  2. METHOTREXATE [Concomitant]
     Route: 058
     Dates: start: 19950721

REACTIONS (4)
  - ANGIOPLASTY [None]
  - CORONARY ARTERY BYPASS [None]
  - GALLBLADDER DISORDER [None]
  - MYOCARDIAL INFARCTION [None]
